FAERS Safety Report 9681286 (Version 1)
Quarter: 2013Q4

REPORT INFORMATION
  Report Type: Spontaneous
  Country: US (occurrence: None)
  Receive Date: 20131108
  Receipt Date: 20131108
  Transmission Date: 20140711
  Serious: Yes (Hospitalization)
  Sender: FDA-Public Use
  Company Number: None

PATIENT
  Age: 56 Year
  Sex: Female

DRUGS (1)
  1. AMANTADINE 100MG [Suspect]
     Indication: MULTIPLE SCLEROSIS
     Dosage: ONE CAPSULE
     Route: 048
     Dates: start: 20131015, end: 20131027

REACTIONS (10)
  - Thirst [None]
  - Back pain [None]
  - Influenza [None]
  - Tooth infection [None]
  - Sinusitis [None]
  - Labyrinthitis [None]
  - Diarrhoea [None]
  - Diarrhoea [None]
  - Pyrexia [None]
  - Headache [None]
